FAERS Safety Report 8203658-4 (Version None)
Quarter: 2012Q1

REPORT INFORMATION
  Report Type: 
  Country: None (occurrence: None)
  Receive Date: 20120308
  Receipt Date: 20120229
  Transmission Date: 20120608
  Serious: Yes (Hospitalization)
  Sender: FDA-Public Use
  Company Number: US-007878

PATIENT
  Age: 35 Year
  Sex: Female
  Weight: 90.7194 kg

DRUGS (9)
  1. VITAMIN D [Concomitant]
  2. ZINC SULFATE [Concomitant]
  3. DAILY VITAMINS [Concomitant]
  4. TRANEXAMIC ACID [Suspect]
     Indication: MENORRHAGIA
     Dosage: (TWO TABLETS THREE TIMES A DAY ORAL)
     Route: 048
     Dates: start: 20120217, end: 20120221
  5. AYGESTIN [Suspect]
     Indication: UTERINE HAEMORRHAGE
     Dates: start: 20120209, end: 20120214
  6. AYGESTIN [Suspect]
     Indication: UTERINE HAEMORRHAGE
     Dates: start: 20120214, end: 20120223
  7. FOLIC ACID [Concomitant]
  8. VITAMIN B-12 [Concomitant]
  9. COD LIVER OIL [Concomitant]

REACTIONS (3)
  - DEEP VEIN THROMBOSIS [None]
  - ANAEMIA [None]
  - PULMONARY EMBOLISM [None]
